FAERS Safety Report 10882486 (Version 1)
Quarter: 2015Q1

REPORT INFORMATION
  Report Type: Spontaneous
  Country: RS (occurrence: RS)
  Receive Date: 20150303
  Receipt Date: 20150303
  Transmission Date: 20150721
  Serious: Yes (Other)
  Sender: FDA-Public Use
  Company Number: RS-ACTAVIS-2015-03617

PATIENT
  Age: 66 Year
  Sex: Female
  Weight: 66 kg

DRUGS (3)
  1. PANRAZOL [Suspect]
     Active Substance: PANTOPRAZOLE SODIUM
     Indication: HELICOBACTER TEST POSITIVE
     Dosage: 40 MG, DAILY
     Route: 048
     Dates: start: 20150214, end: 20150217
  2. OSPAMOX [Suspect]
     Active Substance: AMOXICILLIN
     Indication: HELICOBACTER TEST POSITIVE
     Dosage: 1000 MG, BID
     Route: 048
     Dates: start: 20150214, end: 20150217
  3. FROMILID [Suspect]
     Active Substance: CLARITHROMYCIN
     Indication: HELICOBACTER TEST POSITIVE
     Dosage: 500 MG, BID
     Route: 048
     Dates: start: 20150214, end: 20150217

REACTIONS (6)
  - Angioedema [Recovering/Resolving]
  - Swollen tongue [Recovering/Resolving]
  - Pruritus [Recovering/Resolving]
  - Dysphagia [Recovering/Resolving]
  - Dyspnoea [Recovering/Resolving]
  - Paraesthesia [Recovering/Resolving]

NARRATIVE: CASE EVENT DATE: 20150214
